FAERS Safety Report 8861751 (Version 2)
Quarter: 2012Q4

REPORT INFORMATION
  Report Type: 
  Country: US (occurrence: None)
  Receive Date: 20121026
  Receipt Date: 20121105
  Transmission Date: 20130627
  Serious: Yes (Hospitalization, Other)
  Sender: FDA-Public Use
  Company Number: None

PATIENT
  Age: 70 Year
  Sex: Male
  Weight: 86.18 kg

DRUGS (5)
  1. UNSPECIFIED INGREDIENT [Suspect]
  2. NEVANAC [Suspect]
  3. HYALURONIDASE [Suspect]
  4. PHENYLEPHRINE/TROPICAMIDE/CYCLOPENTOLATE DROPS [Suspect]
  5. NEVANAC [Concomitant]

REACTIONS (3)
  - Product quality issue [None]
  - Eye pain [None]
  - Eye swelling [None]
